FAERS Safety Report 18362311 (Version 1)
Quarter: 2020Q4

REPORT INFORMATION
  Report Type: Report from Study
  Country: US (occurrence: US)
  Receive Date: 20201009
  Receipt Date: 20201009
  Transmission Date: 20210114
  Serious: Yes (Other)
  Sender: FDA-Public Use
  Company Number: US-EMD SERONO-8204254

PATIENT
  Sex: Female

DRUGS (4)
  1. ALEVE [Concomitant]
     Active Substance: NAPROXEN SODIUM
     Indication: INFLUENZA LIKE ILLNESS
  2. REBIF [Suspect]
     Active Substance: INTERFERON BETA-1A
     Route: 058
     Dates: start: 2007
  3. REBIF [Suspect]
     Active Substance: INTERFERON BETA-1A
     Route: 058
  4. REBIF [Suspect]
     Active Substance: INTERFERON BETA-1A
     Indication: MULTIPLE SCLEROSIS
     Dosage: PREFILLED SYRINGE
     Route: 058
     Dates: start: 20040915

REACTIONS (1)
  - Skin necrosis [Recovered/Resolved]
